FAERS Safety Report 7293184-1 (Version None)
Quarter: 2011Q1

REPORT INFORMATION
  Report Type: 
  Country: None (occurrence: None)
  Receive Date: 20110203
  Receipt Date: 20110124
  Transmission Date: 20110831
  Serious: Yes (Hospitalization)
  Sender: FDA-Public Use
  Company Number: WAES 1012USA02751

PATIENT
  Age: 72 Year
  Sex: Male

DRUGS (10)
  1. ACETAMINOPHEN [Concomitant]
  2. NOVAMIN (AMIKACIN SULFATE) [Concomitant]
  3. TORSEMIDE [Concomitant]
  4. DEXAMETHASONE [Suspect]
     Indication: MULTIPLE MYELOMA
     Dosage: 20 MG PO
     Route: 048
     Dates: start: 20101201, end: 20101216
  5. BORTEZOMIB [Suspect]
     Indication: MULTIPLE MYELOMA
     Dosage: 1.95 MG/M[2] IV
     Route: 042
     Dates: start: 20091102, end: 20101216
  6. ASS 100 [Concomitant]
  7. ENOXAPARIN SODIUM [Concomitant]
  8. CAP VORINOSTAT [Suspect]
     Indication: MULTIPLE MYELOMA
     Dosage: 200 MG/DAILY PO
     Route: 048
     Dates: start: 20091102, end: 20101216
  9. PANTOZOL [Concomitant]
  10. KEIMAX [Concomitant]

REACTIONS (8)
  - CARDIAC FAILURE [None]
  - HYPERURICAEMIA [None]
  - DRUG DOSE OMISSION [None]
  - ABDOMINAL PAIN LOWER [None]
  - INSOMNIA [None]
  - BENIGN PROSTATIC HYPERPLASIA [None]
  - MULTIPLE MYELOMA [None]
  - NEOPLASM MALIGNANT [None]
